FAERS Safety Report 7709354-1 (Version None)
Quarter: 2011Q3

REPORT INFORMATION
  Report Type: 
  Country: None (occurrence: None)
  Receive Date: 20110825
  Receipt Date: 20110817
  Transmission Date: 20111222
  Serious: Yes (Hospitalization, Other)
  Sender: FDA-Public Use
  Company Number: US-BAYER-2011-023464

PATIENT
  Age: 36 Year
  Sex: Female

DRUGS (19)
  1. ADVAIR DISKUS 100/50 [Concomitant]
  2. NAPROXEN (ALEVE) [Concomitant]
     Dosage: UNK
     Dates: start: 20090719
  3. ACETAMINOPHEN [Concomitant]
     Dosage: UNK
     Dates: start: 20090303
  4. AZO [Concomitant]
     Dosage: UNK
     Dates: start: 20090719
  5. PHENAZOPYRIDINE HCL TAB [Concomitant]
     Dosage: 200 MG, TID
     Route: 048
     Dates: start: 20090719
  6. NEXIUM [Concomitant]
     Dosage: UNK UNK, QD
     Route: 048
     Dates: start: 20090807
  7. HYDROCODONE BITARTRATE AND ACETAMINOPHEN [Concomitant]
     Indication: PAIN
     Dosage: UNK
     Route: 048
     Dates: start: 20090814
  8. PROMETHAZINE [Concomitant]
     Dosage: UNK
     Dates: start: 20090801
  9. YAZ [Suspect]
     Indication: PREMENSTRUAL SYNDROME
     Dosage: UNK
     Route: 048
     Dates: start: 20060713
  10. MACROBID [Concomitant]
     Indication: URINARY TRACT INFECTION
     Dosage: UNK
     Dates: start: 20090719
  11. PHENAZOPYRIDINE HCL TAB [Concomitant]
     Indication: URINARY TRACT INFECTION
     Dosage: UNK
     Dates: start: 20090719
  12. TYLENOL-500 [Concomitant]
  13. ROLAIDS [Concomitant]
  14. RESCON-MX [Concomitant]
     Indication: MULTIPLE ALLERGIES
     Dosage: UNK
     Route: 048
     Dates: start: 20080101
  15. PROTONIX [Concomitant]
  16. ZOVIA 1/35E-21 [Concomitant]
     Dosage: UNK
     Dates: start: 20050713, end: 20060610
  17. NITROFURANTOIN [Concomitant]
     Dosage: 100 MG, UNK
     Dates: start: 20090718
  18. SEASONALE [Concomitant]
     Dosage: UNK
     Dates: start: 20040708
  19. PHENERGAN HCL [Concomitant]
     Dosage: UNK
     Route: 061
     Dates: start: 20090303

REACTIONS (13)
  - DYSPEPSIA [None]
  - INJURY [None]
  - CONSTIPATION [None]
  - ANXIETY [None]
  - GALLBLADDER DISORDER [None]
  - CHOLECYSTITIS CHRONIC [None]
  - DEPRESSION [None]
  - FLATULENCE [None]
  - BILIARY DYSKINESIA [None]
  - PAIN [None]
  - SCAR [None]
  - DIARRHOEA [None]
  - ABDOMINAL DISTENSION [None]
